FAERS Safety Report 9902882 (Version 2)
Quarter: 2014Q1

REPORT INFORMATION
  Report Type: Spontaneous
  Country: US (occurrence: US)
  Receive Date: 20140217
  Receipt Date: 20140312
  Transmission Date: 20141002
  Serious: Yes (Death, Other)
  Sender: FDA-Public Use
  Company Number: PHHY2014US014607

PATIENT
  Age: 16 Year
  Sex: Female

DRUGS (5)
  1. METHOTREXATE [Suspect]
     Indication: ACUTE LYMPHOCYTIC LEUKAEMIA
     Dosage: 3 G/M2
     Route: 042
  2. METHOTREXATE [Suspect]
     Route: 037
  3. CYTARABINE [Suspect]
     Indication: ACUTE LYMPHOCYTIC LEUKAEMIA
     Route: 037
  4. TOPOTECAN [Suspect]
     Indication: PROPHYLAXIS
     Route: 037
  5. RADIATION THERAPY [Suspect]
     Dosage: 12 GY, UNK

REACTIONS (20)
  - Multi-organ failure [Fatal]
  - Septic shock [Fatal]
  - Condition aggravated [Unknown]
  - Leukoencephalopathy [Unknown]
  - Aphasia [Unknown]
  - Mental status changes [Recovering/Resolving]
  - Pyrexia [Unknown]
  - Pancytopenia [Unknown]
  - Faecal incontinence [Unknown]
  - Urinary incontinence [Unknown]
  - Agitation [Unknown]
  - Delirium [Unknown]
  - Escherichia test positive [Recovered/Resolved]
  - Acute lymphocytic leukaemia recurrent [Unknown]
  - Vision blurred [Unknown]
  - Encopresis [Unknown]
  - Confusional state [Unknown]
  - Headache [Unknown]
  - Mucosal inflammation [Unknown]
  - Drug ineffective [Unknown]
